FAERS Safety Report 6117199-1 (Version None)
Quarter: 2009Q1

REPORT INFORMATION
  Report Type: 
  Country: None (occurrence: None)
  Receive Date: 20090314
  Receipt Date: 20090108
  Transmission Date: 20090719
  Serious: No
  Sender: FDA-Public Use
  Company Number: US-ABBOTT-09P-163-0496588-00

PATIENT
  Sex: Female
  Weight: 92.616 kg

DRUGS (15)
  1. HUMIRA [Suspect]
     Indication: PSORIASIS
     Route: 058
     Dates: start: 20081231
  2. SYNTHROID [Concomitant]
     Indication: HYPOTHYROIDISM
     Route: 048
  3. LAMICTAL [Concomitant]
     Indication: AFFECTIVE DISORDER
     Route: 048
  4. LAMICTAL [Concomitant]
     Indication: BIPOLAR DISORDER
  5. RANITIDINE [Concomitant]
     Indication: GASTROOESOPHAGEAL REFLUX DISEASE
     Route: 048
  6. LEXAPRO [Concomitant]
     Indication: DEPRESSION
     Route: 048
  7. ZYPREXA [Concomitant]
     Indication: DEPRESSION
     Route: 048
  8. ZYPREXA [Concomitant]
     Dosage: AT NIGHT
     Route: 048
  9. NEURONTIN [Concomitant]
     Indication: DIABETIC NEUROPATHY
     Route: 048
  10. TOPAMAX [Concomitant]
     Indication: BIPOLAR DISORDER
     Dosage: BID
     Route: 048
  11. METFORMIN HCL [Concomitant]
     Indication: DIABETES MELLITUS
     Dosage: BID
     Route: 048
  12. REQUIP [Concomitant]
     Indication: RESTLESS LEGS SYNDROME
     Dosage: ATA BEDTIME
     Route: 048
  13. BUSPAR [Concomitant]
     Indication: ANXIETY
     Dosage: QID
     Route: 048
  14. REMERON [Concomitant]
     Indication: AFFECTIVE DISORDER
     Dosage: AT BEDTIME
     Route: 048
  15. TRAZODONE HCL [Concomitant]
     Indication: INSOMNIA
     Dosage: 3 TABLETS AT HS
     Route: 048

REACTIONS (3)
  - BREAST MASS [None]
  - INCORRECT DOSE ADMINISTERED [None]
  - WRONG TECHNIQUE IN DRUG USAGE PROCESS [None]
